FAERS Safety Report 24710762 (Version 1)
Quarter: 2024Q4

REPORT INFORMATION
  Report Type: Spontaneous
  Country: GB (occurrence: GB)
  Receive Date: 20241209
  Receipt Date: 20241209
  Transmission Date: 20250115
  Serious: Yes (Disabling)
  Sender: ESPERION THERAPEUTICS
  Company Number: None

PATIENT

DRUGS (21)
  1. BEMPEDOIC ACID\EZETIMIBE [Suspect]
     Active Substance: BEMPEDOIC ACID\EZETIMIBE
     Indication: Blood cholesterol increased
     Dosage: 1 DOSAGE FORM (180 MG/10 MG)
     Route: 048
  2. ATORVASTATIN [Concomitant]
     Active Substance: ATORVASTATIN
     Indication: Ill-defined disorder
     Dosage: 1 DOSAGE FORM, QD, IN THE EVENING
     Route: 048
     Dates: start: 20240618
  3. BISOPROLOL [Concomitant]
     Active Substance: BISOPROLOL
     Indication: Ill-defined disorder
     Dosage: 1 DOSAGE FORM, QD
     Route: 048
     Dates: start: 20240618
  4. TIOTROPIUM BROMIDE [Concomitant]
     Active Substance: TIOTROPIUM BROMIDE
     Indication: Ill-defined disorder
     Dosage: 1 DOSAGE FORM, QD
     Dates: start: 20240618
  5. BUMETANIDE [Concomitant]
     Active Substance: BUMETANIDE
     Indication: Ill-defined disorder
     Dosage: EACH MORNING
     Route: 048
     Dates: start: 20240618
  6. CLOPIDOGREL [Concomitant]
     Active Substance: CLOPIDOGREL BISULFATE
     Indication: Ill-defined disorder
     Dosage: 1 DOSAGE FORM, QD
     Route: 048
     Dates: start: 20240618
  7. DULOXETINE [Concomitant]
     Active Substance: DULOXETINE
     Indication: Depressed mood
     Dosage: 1 DOSAGE FORM, QD
     Route: 048
     Dates: start: 20240618
  8. ESTRADIOL [Concomitant]
     Active Substance: ESTRADIOL
     Indication: Ill-defined disorder
     Dosage: AT NIGHT DAILY FOR 2-3 WEEKS
     Route: 067
     Dates: start: 20240618
  9. EZETIMIBE [Concomitant]
     Active Substance: EZETIMIBE
     Indication: Ill-defined disorder
     Dosage: 1 DOSAGE FORM, QD
     Route: 048
     Dates: start: 20240618, end: 20241023
  10. FOLIC ACID [Concomitant]
     Active Substance: FOLIC ACID
     Indication: Ill-defined disorder
     Dosage: 1 DOSAGE FORM, QD
     Route: 048
     Dates: start: 20240618
  11. LANSOPRAZOLE [Concomitant]
     Active Substance: LANSOPRAZOLE
     Indication: Ill-defined disorder
     Dosage: 1 DOSAGE FORM
     Route: 048
     Dates: start: 20240618
  12. MIRTAZAPINE [Concomitant]
     Active Substance: MIRTAZAPINE
     Indication: Depressed mood
     Dosage: AT NIGHT
     Route: 048
     Dates: start: 20240618
  13. PEPTAC [PANTOPRAZOLE] [Concomitant]
     Indication: Ill-defined disorder
     Dosage: 2X5ML SPOON 4 TIMES/DAY WHEN REQUIRED
     Route: 048
     Dates: start: 20240618
  14. PERINDOPRIL ERBUMINE [Concomitant]
     Active Substance: PERINDOPRIL ERBUMINE
     Indication: Hypertension
     Dosage: 1 DOSAGE FORM, QD
     Route: 048
     Dates: start: 20240618
  15. ALBUTEROL [Concomitant]
     Active Substance: ALBUTEROL
     Indication: Ill-defined disorder
     Dosage: INHALE 1 TO 2 DOSES UP TO FOUR TIMES A DAY AS NEEDED
     Dates: start: 20240618
  16. TRAMADOL [Concomitant]
     Active Substance: TRAMADOL
     Indication: Ill-defined disorder
     Dosage: TAKE ONE TO TWO  AS NEEDED UP TO FOUR TIMES A DAY
     Route: 048
     Dates: start: 20240618
  17. MORPHINE SULFATE [Concomitant]
     Active Substance: MORPHINE SULFATE
     Indication: Pain
     Dosage: UP TO EVERY FOUR HOURS
     Route: 048
     Dates: start: 20240619
  18. POLYETHYLENE GLYCOL 3350\POTASSIUM CHLORIDE\SODIUM BICARBONATE\SODIUM [Concomitant]
     Active Substance: POLYETHYLENE GLYCOL 3350\POTASSIUM CHLORIDE\SODIUM BICARBONATE\SODIUM CHLORIDE
     Indication: Ill-defined disorder
     Dosage: 1 DAILY INCREASING BY ONE SACHET EVERY FEW DAYS...
     Route: 048
     Dates: start: 20240628
  19. DIAZEPAM [Concomitant]
     Active Substance: DIAZEPAM
     Indication: Muscle spasms
     Dosage: AT LUNCHTIME FOR FUNCTIONAL NEUROLOGICAL DISORDER / BACK SPASMS
     Route: 048
     Dates: start: 20240718
  20. ISOSORBIDE MONONITRATE [Concomitant]
     Active Substance: ISOSORBIDE MONONITRATE
     Indication: Ill-defined disorder
     Dosage: EACH MORNING
     Route: 048
     Dates: start: 20240802
  21. ZOLPIDEM [Concomitant]
     Active Substance: ZOLPIDEM TARTRATE
     Indication: Poor quality sleep
     Dosage: AT NIGHT
     Route: 048
     Dates: start: 20240806

REACTIONS (2)
  - Malaise [Recovered/Resolved]
  - Pain [Recovered/Resolved]

NARRATIVE: CASE EVENT DATE: 20241127
